FAERS Safety Report 8807041 (Version 2)
Quarter: 2012Q4

REPORT INFORMATION
  Report Type: 
  Country: NL (occurrence: NL)
  Receive Date: 20120925
  Receipt Date: 20121015
  Transmission Date: 20130627
  Serious: Yes (Other)
  Sender: FDA-Public Use
  Company Number: NL-UCBSA-067061

PATIENT
  Age: 25 Year
  Sex: Female

DRUGS (13)
  1. KEPPRA [Suspect]
     Indication: EPILEPSY
  2. ASPARAGINASE [Concomitant]
     Indication: CHEMOTHERAPY
     Route: 042
  3. ASPARAGINASE [Concomitant]
     Indication: CHEMOTHERAPY
     Route: 042
  4. VINCRISTINE [Concomitant]
     Indication: CHEMOTHERAPY
     Route: 042
  5. VINCRISTINE [Concomitant]
     Indication: CHEMOTHERAPY
     Route: 042
  6. DAUNORUBICIN [Concomitant]
     Indication: CHEMOTHERAPY
     Route: 042
  7. DAUNORUBICIN [Concomitant]
     Indication: CHEMOTHERAPY
     Route: 042
  8. CYCLOPHOSPHAMIDE [Concomitant]
     Indication: CHEMOTHERAPY
     Route: 042
  9. CYCLOPHOSPHAMIDE [Concomitant]
     Indication: CHEMOTHERAPY
     Route: 042
  10. METHOTREXATE [Concomitant]
     Indication: CHEMOTHERAPY
     Route: 037
  11. DEXAMETHASONE [Concomitant]
     Indication: CHEMOTHERAPY
     Route: 037
  12. LABETALOL [Concomitant]
     Indication: HYPERTENSION
  13. PHENYTOIN [Concomitant]
     Indication: EPILEPSY

REACTIONS (1)
  - Central nervous system lesion [Recovering/Resolving]
